FAERS Safety Report 7321191-9 (Version None)
Quarter: 2011Q1

REPORT INFORMATION
  Report Type: 
  Country: None (occurrence: None)
  Receive Date: 20110228
  Receipt Date: 20110218
  Transmission Date: 20110831
  Serious: Yes (Hospitalization)
  Sender: FDA-Public Use
  Company Number: FR-PFIZER INC-2011036550

PATIENT
  Age: 59 Year
  Sex: Male
  Weight: 84 kg

DRUGS (6)
  1. ANGIOMAX [Suspect]
     Indication: PERCUTANEOUS CORONARY INTERVENTION
     Dosage: 13 ML, BOLUS REGIMEN # 1
     Route: 040
     Dates: start: 20091217, end: 20091217
  2. ANGIOMAX [Suspect]
     Dosage: 13 ML, BOLUS REGIMEN # 3
     Route: 040
     Dates: start: 20091222, end: 20091222
  3. ANGIOMAX [Suspect]
     Dosage: 30 ML, UNK REGIMEN # 2
     Route: 042
     Dates: start: 20091217, end: 20091217
  4. ANGIOMAX [Suspect]
     Dosage: 30 ML, UNK REGIMEN # 4
     Route: 042
     Dates: start: 20091222, end: 20091222
  5. HEPARIN [Concomitant]
  6. ATORVASTATIN CALCIUM [Suspect]
     Indication: HYPERCHOLESTEROLAEMIA
     Dosage: 80 MG, UNK
     Route: 048
     Dates: start: 20091215, end: 20100109

REACTIONS (1)
  - RESPIRATORY DISTRESS [None]
